FAERS Safety Report 5304575-X (Version None)
Quarter: 2007Q2

REPORT INFORMATION
  Report Type: 
  Country: None (occurrence: None)
  Receive Date: 20070423
  Receipt Date: 20070416
  Transmission Date: 20071010
  Serious: Yes (Hospitalization)
  Sender: FDA-Public Use
  Company Number: US-GLAXOSMITHKLINE-A0647411A

PATIENT
  Age: 43 Year
  Sex: Female

DRUGS (8)
  1. ADVAIR DISKUS 100/50 [Suspect]
     Indication: ASTHMA
     Route: 055
     Dates: start: 20060401
  2. PREDNISONE TAB [Concomitant]
  3. XANAX [Concomitant]
  4. VALIUM [Concomitant]
  5. DARVOCET [Concomitant]
  6. ALBUTEROL [Concomitant]
  7. PERCOCET [Concomitant]
  8. ALBUTEROL [Concomitant]

REACTIONS (3)
  - BRONCHITIS [None]
  - DYSPNOEA [None]
  - VISION BLURRED [None]
